FAERS Safety Report 20041929 (Version 2)
Quarter: 2022Q1

REPORT INFORMATION
  Report Type: Other
  Country: CA (occurrence: CA)
  Receive Date: 20211108
  Receipt Date: 20220114
  Transmission Date: 20220423
  Serious: Yes (Other)
  Sender: FDA-Public Use
  Company Number: CA-INTERCEPT-PM2021002875

PATIENT
  Sex: Male

DRUGS (2)
  1. OCALIVA [Suspect]
     Active Substance: OBETICHOLIC ACID
     Indication: Primary biliary cholangitis
     Dosage: 5 MILLIGRAM, QD
     Route: 048
     Dates: start: 20210823, end: 202201
  2. URSODIOL [Concomitant]
     Active Substance: URSODIOL
     Dosage: 500 MILLIGRAM, QD
     Dates: start: 2018

REACTIONS (7)
  - Cataract [Unknown]
  - Chromaturia [Unknown]
  - Fall [Unknown]
  - Scratch [Unknown]
  - Eyelids pruritus [Unknown]
  - Dizziness [Unknown]
  - Pruritus [Unknown]

NARRATIVE: CASE EVENT DATE: 20210101
